FAERS Safety Report 4597203-2 (Version None)
Quarter: 2005Q1

REPORT INFORMATION
  Report Type: 
  Country: None (occurrence: None)
  Receive Date: 20050301
  Receipt Date: 20050217
  Transmission Date: 20050727
  Serious: Yes (Hospitalization)
  Sender: FDA-Public Use
  Company Number: 2005SE00816

PATIENT
  Age: 61 Year
  Sex: Male
  Weight: 70 kg

DRUGS (6)
  1. BLOPRESS [Suspect]
     Indication: HYPERTENSION
     Dosage: 8 MG QD PO
     Route: 048
     Dates: end: 20050128
  2. BASEN [Suspect]
     Indication: DIABETES MELLITUS
     Dosage: 0.2 MG TID PO
     Route: 048
     Dates: end: 20050128
  3. NORVASC [Suspect]
     Indication: HYPERTENSION
     Dosage: 5 MG BID PO
     Route: 048
     Dates: start: 20050118, end: 20050128
  4. ADALAT [Concomitant]
  5. TAKEPRON [Concomitant]
  6. ALLEGRA [Concomitant]

REACTIONS (6)
  - C-REACTIVE PROTEIN INCREASED [None]
  - DIABETIC END STAGE RENAL DISEASE [None]
  - DIABETIC NEPHROPATHY [None]
  - DIALYSIS [None]
  - MALAISE [None]
  - PYREXIA [None]
